FAERS Safety Report 9054601 (Version 2)
Quarter: 2014Q2

REPORT INFORMATION
  Report Type: Spontaneous
  Country: US (occurrence: US)
  Receive Date: 20130208
  Receipt Date: 20140403
  Transmission Date: 20141212
  Serious: Yes (Death)
  Sender: FDA-Public Use
  Company Number: US-B.I. PHARMACEUTICALS,INC./RIDGEFIELD-2013-BI-03391BP

PATIENT
  Sex: Female
  Weight: 63.5 kg

DRUGS (10)
  1. PRADAXA [Suspect]
     Indication: ANTICOAGULANT THERAPY
     Dosage: 300 MG
     Route: 065
     Dates: start: 20111201, end: 20111222
  2. PRADAXA [Suspect]
     Indication: ATRIAL FIBRILLATION
  3. MIRALAX [Concomitant]
     Route: 065
  4. CALCIUM [Concomitant]
     Route: 065
  5. LISINOPRIL [Concomitant]
     Route: 065
  6. OMEPRAZOLE [Concomitant]
     Route: 065
  7. ZOCOR [Concomitant]
     Route: 065
  8. TOPROL XL [Concomitant]
     Route: 065
  9. FOSAMAX [Concomitant]
     Route: 065
  10. HYDROCO [Concomitant]
     Route: 065

REACTIONS (1)
  - Myocardial infarction [Fatal]
